FAERS Safety Report 20036010 (Version 1)
Quarter: 2021Q4

REPORT INFORMATION
  Report Type: Other
  Country: US (occurrence: None)
  Receive Date: 20211105
  Receipt Date: 20211105
  Transmission Date: 20220303
  Serious: No
  Sender: FDA-Public Use
  Company Number: US-ROCHE-2945296

PATIENT
  Age: 38 Year
  Sex: Female
  Weight: 77.180 kg

DRUGS (2)
  1. OCREVUS [Suspect]
     Active Substance: OCRELIZUMAB
     Indication: Relapsing-remitting multiple sclerosis
     Dosage: DATE OF TREATMENT: 28/JUN/2018
     Route: 042
     Dates: start: 201806
  2. ZYRTEC (UNITED STATES) [Concomitant]
     Indication: Hypersensitivity
     Route: 048

REACTIONS (1)
  - COVID-19 [Recovering/Resolving]

NARRATIVE: CASE EVENT DATE: 20210925
